FAERS Safety Report 4594664-X (Version None)
Quarter: 2005Q1

REPORT INFORMATION
  Report Type: 
  Country: None (occurrence: None)
  Receive Date: 20050301
  Receipt Date: 20041206
  Transmission Date: 20050727
  Serious: Yes (Death)
  Sender: FDA-Public Use
  Company Number: US-BRISTOL-MYERS SQUIBB COMPANY-12787941

PATIENT
  Age: 62 Year
  Sex: Male

DRUGS (3)
  1. ERBITUX [Suspect]
     Indication: RECTAL CANCER METASTATIC
     Route: 042
     Dates: start: 20041103, end: 20041103
  2. FLUOROURACIL [Concomitant]
     Dosage: ADMINISTERED PRIOR TO CETUXIMAB.
  3. LEUCOVORIN [Concomitant]
     Dosage: ADMINISTERED PRIOR TO CETUXMAB.

REACTIONS (3)
  - BACK PAIN [None]
  - CHILLS [None]
  - RECTAL CANCER METASTATIC [None]
